FAERS Safety Report 8451434 (Version 2)
Quarter: 2012Q4

REPORT INFORMATION
  Report Type: 
  Country: US (occurrence: US)
  Receive Date: 20120309
  Receipt Date: 20120906
  Transmission Date: 20130627
  Serious: Yes (Hospitalization)
  Sender: FDA-Public Use
  Company Number: US-US-EMD SERONO, INC.-7116634

PATIENT
  Sex: Female
  Weight: 59 kg

DRUGS (3)
  1. REBIF [Suspect]
     Indication: MULTIPLE SCLEROSIS
     Dates: start: 2002, end: 2006
  2. REBIF [Suspect]
     Route: 058
     Dates: start: 20081201
  3. PERCOCET [Concomitant]
     Indication: PAIN

REACTIONS (3)
  - Pulmonary embolism [Unknown]
  - Bladder dysfunction [Unknown]
  - Drug level below therapeutic [Unknown]
